FAERS Safety Report 20351359 (Version 1)
Quarter: 2022Q1

REPORT INFORMATION
  Report Type: Report from Study
  Country: CA (occurrence: CA)
  Receive Date: 20220119
  Receipt Date: 20220119
  Transmission Date: 20220423
  Serious: Yes (Other)
  Sender: FDA-Public Use
  Company Number: CA-BAUSCH-BL-2021-035413

PATIENT

DRUGS (7)
  1. CONTRAVE [Suspect]
     Active Substance: BUPROPION HYDROCHLORIDE\NALTREXONE HYDROCHLORIDE
     Indication: Weight control
     Dosage: 90/8 MG (1 DOSAGE FORMS,1 IN 1 D)
     Route: 048
     Dates: start: 20211003, end: 20211009
  2. CONTRAVE [Suspect]
     Active Substance: BUPROPION HYDROCHLORIDE\NALTREXONE HYDROCHLORIDE
     Dosage: 90/8 MG, 1TABS IN THE MORNING AND 1TAB IN THE EVENING DAILY.
     Route: 048
     Dates: start: 20211010, end: 20211016
  3. CONTRAVE [Suspect]
     Active Substance: BUPROPION HYDROCHLORIDE\NALTREXONE HYDROCHLORIDE
     Dosage: WEEK3, 90/8 MG 2TAB IN THE MORNING AND 1TAB IN THE EVENING DAILY.
     Route: 048
     Dates: start: 20211017, end: 20211020
  4. CONTRAVE [Suspect]
     Active Substance: BUPROPION HYDROCHLORIDE\NALTREXONE HYDROCHLORIDE
     Dosage: WEEK4, 90/8 MG 1 TAB AM AND 1 TAB PM DAILY.
     Route: 048
     Dates: start: 20211021, end: 20211027
  5. CONTRAVE [Suspect]
     Active Substance: BUPROPION HYDROCHLORIDE\NALTREXONE HYDROCHLORIDE
     Dosage: 90/8 MG 2 TAB AM AND 1 TAB PM DAILY.
     Route: 048
     Dates: start: 20211028, end: 20211103
  6. CONTRAVE [Suspect]
     Active Substance: BUPROPION HYDROCHLORIDE\NALTREXONE HYDROCHLORIDE
     Dosage: 90/8 MG 2 TAB AM AND 2 TAB PM DAILY.
     Route: 048
     Dates: start: 20211104
  7. FERROMAX [FERROUS SULFATE] [Concomitant]
     Indication: Haemoglobin decreased
     Dosage: 150 MG, 1 IN 1 D
     Route: 048
     Dates: start: 202107

REACTIONS (11)
  - Fall [Unknown]
  - Head injury [Not Recovered/Not Resolved]
  - Loss of consciousness [Unknown]
  - Headache [Not Recovered/Not Resolved]
  - Amnesia [Not Recovered/Not Resolved]
  - Illness [Recovered/Resolved]
  - Anaemia [Not Recovered/Not Resolved]
  - Vomiting [Recovered/Resolved]
  - Diarrhoea [Recovered/Resolved]
  - Asthenia [Not Recovered/Not Resolved]
  - Product dose omission in error [Unknown]

NARRATIVE: CASE EVENT DATE: 20210101
